FAERS Safety Report 20299580 (Version 3)
Quarter: 2022Q2

REPORT INFORMATION
  Report Type: Spontaneous
  Country: US (occurrence: US)
  Receive Date: 20220105
  Receipt Date: 20220401
  Transmission Date: 20220721
  Serious: No
  Sender: FDA-Public Use
  Company Number: US-PFIZER INC-202101333914

PATIENT
  Age: 40 Year
  Sex: Female
  Weight: 72.57 kg

DRUGS (10)
  1. IBRANCE [Interacting]
     Active Substance: PALBOCICLIB
     Indication: Breast cancer female
     Dosage: 125 MG
     Dates: start: 20210910
  2. IBRANCE [Interacting]
     Active Substance: PALBOCICLIB
     Dosage: 125 MG
     Dates: start: 20210922
  3. IBRANCE [Interacting]
     Active Substance: PALBOCICLIB
     Dosage: 125 MG
     Dates: start: 20210923
  4. IBRANCE [Interacting]
     Active Substance: PALBOCICLIB
     Dosage: 125 MG
     Dates: start: 20210924
  5. IBRANCE [Interacting]
     Active Substance: PALBOCICLIB
     Dosage: 125 MG
     Dates: start: 20210929
  6. IBRANCE [Interacting]
     Active Substance: PALBOCICLIB
     Dosage: 125 MG, CYCLIC(1 CAPSULE ONCE DAILY FOR 21 DAYS AND 7 DAYS OFF)
     Route: 048
     Dates: start: 20210930
  7. IBRANCE [Interacting]
     Active Substance: PALBOCICLIB
     Dosage: 125 MG
     Dates: start: 20211004
  8. IBRANCE [Interacting]
     Active Substance: PALBOCICLIB
     Dosage: 125 MG, UNK
     Dates: start: 20211018
  9. IBRANCE [Interacting]
     Active Substance: PALBOCICLIB
     Dosage: 125 MG
     Dates: start: 20211010
  10. SUDAFED NASAL DECONGESTANT MAXIMUM STRENGTH [Interacting]
     Active Substance: PSEUDOEPHEDRINE HYDROCHLORIDE
     Indication: Rhinorrhoea
     Dosage: UNK (2 TABLETS BY MOUTH EVERY 4 HOURS DO NOT TAKE MORE THAN 10 IN 24 HRS )
     Dates: start: 20211012

REACTIONS (11)
  - Fatigue [Unknown]
  - Decreased appetite [Unknown]
  - Drug interaction [Not Recovered/Not Resolved]
  - Headache [Not Recovered/Not Resolved]
  - Dry mouth [Unknown]
  - Pain in extremity [Unknown]
  - Arthralgia [Not Recovered/Not Resolved]
  - Pain in extremity [Not Recovered/Not Resolved]
  - Condition aggravated [Unknown]
  - Hypoaesthesia [Unknown]
  - Hot flush [Not Recovered/Not Resolved]

NARRATIVE: CASE EVENT DATE: 20210101
